FAERS Safety Report 15679706 (Version 1)
Quarter: 2018Q4

REPORT INFORMATION
  Report Type: Spontaneous
  Country: DK (occurrence: DK)
  Receive Date: 20181203
  Receipt Date: 20181203
  Transmission Date: 20190205
  Serious: Yes (Other)
  Sender: FDA-Public Use
  Company Number: DK-CURIUM-201800428

PATIENT
  Age: 32 Year
  Sex: Female

DRUGS (2)
  1. MAASOL% [Suspect]
     Active Substance: TECHNETIUM TC-99M OXIDRONATE
     Indication: PULMONARY EMBOLISM
     Dosage: UNK UNK, SINGLE
     Route: 042
     Dates: start: 20181108, end: 20181108
  2. TECHNETIUM TC 99M (PERTECHNETATE (99MTC) SODIUM) [Suspect]
     Active Substance: TECHNETIUM TC-99M
     Indication: PULMONARY EMBOLISM
     Dosage: UNK
     Route: 042
     Dates: start: 20181108, end: 20181108

REACTIONS (6)
  - Oxygen saturation decreased [Recovered/Resolved]
  - Chest pain [Recovered/Resolved]
  - Dyspnoea [Recovered/Resolved]
  - Blood pressure decreased [Recovered/Resolved]
  - Pallor [Recovered/Resolved]
  - Chest discomfort [Recovered/Resolved]

NARRATIVE: CASE EVENT DATE: 20181108
